FAERS Safety Report 8043137-0 (Version None)
Quarter: 2012Q1

REPORT INFORMATION
  Report Type: 
  Country: None (occurrence: None)
  Receive Date: 20120112
  Receipt Date: 20120109
  Transmission Date: 20120608
  Serious: Yes (Death)
  Sender: FDA-Public Use
  Company Number: PHEH2011US012586

PATIENT
  Sex: Female

DRUGS (11)
  1. BACLOFEN [Suspect]
     Dosage: UNK UKN, UNK
  2. GABAPENTIN [Suspect]
     Dosage: 300 MG, QID
     Route: 048
  3. DIAZEPAM [Suspect]
     Dosage: 10 MG, BID
  4. PHYSICAL THERAPY [Concomitant]
     Dosage: UNK UKN, UNK
  5. CITALOPRAM [Suspect]
     Indication: DEPRESSION
     Dosage: 20 MG, UNK
  6. SINGULAIR [Suspect]
     Dosage: 10 MG, QD
  7. AMPHETAMINE AND DEXTROAMPHETAMINE SALTS [Suspect]
     Dosage: 10 MG, BID
  8. ACETAMINOPHEN AND HYDROCODONE BITARTRATE [Suspect]
     Indication: PAIN
     Dosage: 10/500 MG
  9. TYSABRI [Suspect]
     Dosage: UNK UKN, UNK
  10. ZANAFLEX [Suspect]
     Indication: MUSCLE RELAXANT THERAPY
     Dosage: UNK
  11. GILENYA [Suspect]
     Dosage: UNK
     Route: 048
     Dates: start: 20110225, end: 20110318

REACTIONS (2)
  - ASTHENIA [None]
  - DEATH [None]
